FAERS Safety Report 4346872-0 (Version None)
Quarter: 2004Q1

REPORT INFORMATION
  Report Type: 
  Country: None (occurrence: None)
  Receive Date: 20040329
  Receipt Date: 20031209
  Transmission Date: 20041129
  Serious: No
  Sender: FDA-Public Use
  Company Number: USA031254306

PATIENT
  Age: 18 Year
  Sex: Male

DRUGS (4)
  1. STRATTERA [Suspect]
     Indication: ATTENTION DEFICIT/HYPERACTIVITY DISORDER
     Dates: start: 20030201
  2. ZOLOFT [Concomitant]
  3. REMERON [Concomitant]
  4. NEXIUM [Concomitant]

REACTIONS (1)
  - DRUG SCREEN POSITIVE [None]
